FAERS Safety Report 7911155-6 (Version None)
Quarter: 2011Q4

REPORT INFORMATION
  Report Type: 
  Country: None (occurrence: None)
  Receive Date: 20111114
  Receipt Date: 20111102
  Transmission Date: 20120403
  Serious: Yes (Hospitalization)
  Sender: FDA-Public Use
  Company Number: CA-JNJFOC-20111103275

PATIENT
  Sex: Male
  Weight: 94 kg

DRUGS (4)
  1. REMICADE [Suspect]
     Indication: ANKYLOSING SPONDYLITIS
     Route: 042
     Dates: start: 20101217
  2. REMICADE [Suspect]
     Route: 042
     Dates: start: 20101217
  3. REMICADE [Suspect]
     Route: 042
     Dates: start: 20050101
  4. REMICADE [Suspect]
     Indication: PSORIATIC ARTHROPATHY
     Route: 042
     Dates: start: 20050101

REACTIONS (4)
  - PSORIASIS [None]
  - ARTHRALGIA [None]
  - INTESTINAL OPERATION [None]
  - WEIGHT DECREASED [None]
